FAERS Safety Report 9170347 (Version 2)
Quarter: 2013Q1

REPORT INFORMATION
  Report Type: Spontaneous
  Country: DE (occurrence: None)
  Receive Date: 20130311
  Receipt Date: 20130315
  Transmission Date: 20140127
  Serious: Yes (Hospitalization)
  Sender: FDA-Public Use
  Company Number: AUR-APL-2013-02047

PATIENT
  Age: 59 Year
  Sex: Female
  Weight: 60 kg

DRUGS (5)
  1. SIMVASTATIN [Suspect]
     Indication: PRODUCT USED FOR UNKNOWN INDICATION
     Dosage: (0-0-1), ORAL STOPPED?
     Route: 048
  2. FLUPIRTINE MALEATE [Suspect]
     Indication: PRODUCT USED FOR UNKNOWN INDICATION
     Route: 048
  3. ASS (ACETYSALICYLIC ACID) [Concomitant]
  4. METO-HENNING (METOPROLOL TARTRATE) [Concomitant]
  5. RAMILICH (RAMIPRIL) [Concomitant]

REACTIONS (3)
  - Jaundice [None]
  - Rhabdomyolysis [None]
  - Drug interaction [None]
